FAERS Safety Report 24646889 (Version 1)
Quarter: 2024Q4

REPORT INFORMATION
  Report Type: Spontaneous
  Country: US (occurrence: US)
  Receive Date: 20241121
  Receipt Date: 20241121
  Transmission Date: 20250115
  Serious: No
  Sender: BRIGHTGENE BIO-MEDICAL TECHNOLOGY
  Company Number: US-BrightGene Bio-Medical Technology  Co., Ltd.-2165566

PATIENT

DRUGS (1)
  1. ENTECAVIR [Suspect]
     Active Substance: ENTECAVIR

REACTIONS (1)
  - Cough [Unknown]
